FAERS Safety Report 6321521-0 (Version None)
Quarter: 2009Q3

REPORT INFORMATION
  Report Type: 
  Country: None (occurrence: None)
  Receive Date: 20090824
  Receipt Date: 20080201
  Transmission Date: 20100115
  Serious: Yes (Other)
  Sender: FDA-Public Use
  Company Number: US-ASTRAZENECA-2007UW15972

PATIENT
  Age: 28 Year
  Sex: Male
  Weight: 107 kg

DRUGS (23)
  1. SEROQUEL [Suspect]
     Indication: BIPOLAR DISORDER
     Dosage: 100 TO 300 MG DAILY
     Route: 048
     Dates: start: 20020822
  2. SEROQUEL [Suspect]
     Dosage: STRENGTH- 25 MG TO 400 MG
     Route: 048
     Dates: start: 20020822
  3. CLOZARIL [Concomitant]
     Dates: start: 20020101
  4. ZYPREXA [Concomitant]
     Dates: start: 20020101
  5. TEGRETOL [Concomitant]
  6. ATIVAN [Concomitant]
     Dosage: STRENGTH 1 MG TO 2 MG
     Dates: start: 20020530
  7. ATIVAN [Concomitant]
  8. HALDOL [Concomitant]
  9. DURAGESIC-100 [Concomitant]
     Dosage: STRENGTH: 50 MCG, 100 MCG
     Route: 048
     Dates: start: 20020530
  10. IBUPROFEN [Concomitant]
     Dates: start: 20020530
  11. PROMETHAZINE [Concomitant]
     Dates: start: 20020530
  12. CLONAZEPAM [Concomitant]
     Dosage: STRENGTH 0.5 MG, 1 MG AND 2 MG
     Dates: start: 20020606
  13. BENZTROPINE MES [Concomitant]
     Dosage: STRENGTH 0.5 MG AND 2 MG
     Dates: start: 20020614
  14. CLONIDINE HCL [Concomitant]
     Dates: start: 20020614
  15. AMBIEN [Concomitant]
     Dosage: STRENGTH 5 MG AND 10 MG
     Dates: start: 20020705
  16. LITHIUM CARBONATE [Concomitant]
     Dates: start: 20020722
  17. PAXIL [Concomitant]
     Dosage: STRENGTH 10 MG TO 37.5 MG
     Dates: start: 20020822
  18. LEVAQUIN [Concomitant]
     Dates: start: 20020822
  19. DEPAKOTE [Concomitant]
     Dates: start: 20020916
  20. CLARITIN [Concomitant]
     Dates: start: 20020916
  21. TRAZODONE HCL [Concomitant]
     Dates: start: 20021014
  22. TOPROL-XL [Concomitant]
     Dates: start: 20040928
  23. LIPITOR [Concomitant]
     Indication: BLOOD CHOLESTEROL INCREASED
     Dates: start: 20031130

REACTIONS (7)
  - BLOOD CHOLESTEROL INCREASED [None]
  - BLOOD TRIGLYCERIDES INCREASED [None]
  - OBESITY [None]
  - ROAD TRAFFIC ACCIDENT [None]
  - SUICIDAL IDEATION [None]
  - TYPE 2 DIABETES MELLITUS [None]
  - UPPER LIMB FRACTURE [None]
